APPROVED DRUG PRODUCT: CYCLOSPORINE
Active Ingredient: CYCLOSPORINE
Strength: 100MG/ML
Dosage Form/Route: SOLUTION;ORAL
Application: A065167 | Product #001
Applicant: PHARMACEUTICAL ASSOCIATES INC
Approved: Jan 5, 2005 | RLD: No | RS: No | Type: DISCN